FAERS Safety Report 6972000-9 (Version None)
Quarter: 2010Q3

REPORT INFORMATION
  Report Type: 
  Country: None (occurrence: None)
  Receive Date: 20100908
  Receipt Date: 20100908
  Transmission Date: 20110219
  Serious: Yes (Other)
  Sender: FDA-Public Use
  Company Number: None

PATIENT
  Age: 57 Year
  Sex: Female
  Weight: 72.5755 kg

DRUGS (1)
  1. AVELOX [Suspect]
     Indication: HYPERSENSITIVITY
     Dosage: 400 MG 1 PER DAY
     Dates: start: 20100809, end: 20100816

REACTIONS (8)
  - DEPRESSION [None]
  - FEELING ABNORMAL [None]
  - FLUSHING [None]
  - NERVOUSNESS [None]
  - PALPITATIONS [None]
  - PANIC ATTACK [None]
  - SKIN BURNING SENSATION [None]
  - TREMOR [None]
